FAERS Safety Report 24642296 (Version 1)
Quarter: 2024Q4

REPORT INFORMATION
  Report Type: Spontaneous
  Country: US (occurrence: US)
  Receive Date: 20241120
  Receipt Date: 20241120
  Transmission Date: 20250115
  Serious: No
  Sender: BAYER HEALTHCARE LLC
  Company Number: US-BAYER-2024A165415

PATIENT
  Age: 75 Year
  Sex: Male

DRUGS (1)
  1. ALEVE [Suspect]
     Active Substance: NAPROXEN SODIUM
     Indication: Arthritis
     Dosage: 2 DF
     Route: 048
     Dates: start: 20241119

REACTIONS (1)
  - Inappropriate schedule of product administration [Unknown]
